FAERS Safety Report 6806959-7 (Version None)
Quarter: 2010Q2

REPORT INFORMATION
  Report Type: 
  Country: None (occurrence: None)
  Receive Date: 20100629
  Receipt Date: 20080611
  Transmission Date: 20101027
  Serious: No
  Sender: FDA-Public Use
  Company Number: US-PFIZER INC-2008049339

PATIENT
  Sex: Male
  Weight: 93.2 kg

DRUGS (3)
  1. VIAGRA [Suspect]
     Indication: ERECTILE DYSFUNCTION
     Route: 048
  2. TIAZAC [Concomitant]
  3. LIPITOR [Concomitant]

REACTIONS (4)
  - CYANOPSIA [None]
  - DRUG EFFECT DECREASED [None]
  - HEADACHE [None]
  - VISUAL IMPAIRMENT [None]
